FAERS Safety Report 26058769 (Version 1)
Quarter: 2025Q4

REPORT INFORMATION
  Report Type: Spontaneous
  Country: US (occurrence: None)
  Receive Date: 20251117
  Receipt Date: 20251117
  Transmission Date: 20260117
  Serious: Yes (Life-Threatening, Hospitalization)
  Sender: FDA-CTU
  Company Number: None

PATIENT
  Age: 74 Year
  Sex: Female
  Weight: 86.85 kg

DRUGS (5)
  1. SEMAGLUTIDE [Suspect]
     Active Substance: SEMAGLUTIDE
     Indication: Weight decreased
     Dosage: OTHER QUANTITY : 50 INJECTION(S)?OTHER FREQUENCY : ONCE WEEKLY?
     Route: 058
  2. VENLAFAXINE HYDROCHLORIDE [Concomitant]
     Active Substance: VENLAFAXINE HYDROCHLORIDE
  3. Metoplorol 25mg [Concomitant]
  4. Folic acids [Concomitant]
  5. TYLENOL [Concomitant]
     Active Substance: ACETAMINOPHEN

REACTIONS (10)
  - Back pain [None]
  - Chills [None]
  - Vomiting [None]
  - Kidney infection [None]
  - Confusional state [None]
  - Memory impairment [None]
  - Sepsis [None]
  - Post procedural complication [None]
  - Atrial fibrillation [None]
  - Blood pressure increased [None]

NARRATIVE: CASE EVENT DATE: 20251105
